FAERS Safety Report 22142801 (Version 1)
Quarter: 2023Q1

REPORT INFORMATION
  Report Type: Spontaneous
  Country: US (occurrence: US)
  Receive Date: 20230327
  Receipt Date: 20230327
  Transmission Date: 20230418
  Serious: No
  Sender: FDA-Public Use
  Company Number: US-Blueprint Medicines Corporation-SP-US-2023-000575

PATIENT
  Age: 70 Year
  Sex: Female

DRUGS (2)
  1. AYVAKIT [Suspect]
     Active Substance: AVAPRITINIB
     Indication: Systemic mastocytosis
     Dosage: 100MG TABLET BY MOUTH ALTERNATING DAILY DOSING WITH 200MG TABLET
     Route: 048
     Dates: start: 20211011
  2. AYVAKIT [Suspect]
     Active Substance: AVAPRITINIB
     Dosage: 100MG TABLET BY MOUTH ALTERNATING DAILY DOSING WITH 200MG TABLET
     Route: 048
     Dates: start: 20211011

REACTIONS (1)
  - Illness [Recovered/Resolved]

NARRATIVE: CASE EVENT DATE: 20230317
